FAERS Safety Report 6341329-X (Version None)
Quarter: 2009Q3

REPORT INFORMATION
  Report Type: 
  Country: None (occurrence: None)
  Receive Date: 20090904
  Receipt Date: 20090825
  Transmission Date: 20100115
  Serious: Yes (Hospitalization, Disabling)
  Sender: FDA-Public Use
  Company Number: PHHO2003AT14779

PATIENT
  Sex: Female

DRUGS (5)
  1. ZOLEDRONATE T29581+ [Suspect]
     Indication: BREAST CANCER
     Dosage: 4 MG/6-MONTHLY
     Route: 042
     Dates: start: 20000225, end: 20030225
  2. ARIMIDEX [Concomitant]
     Indication: BREAST CANCER
     Dosage: 1 MG, QD
     Route: 048
     Dates: start: 20000225, end: 20030304
  3. ZOLADEX [Concomitant]
     Indication: BREAST CANCER
     Dosage: 3.6 MG, QMO
     Route: 058
     Dates: start: 20000225
  4. VITAMIN D [Concomitant]
  5. CALCIUM [Concomitant]

REACTIONS (2)
  - UTERINE DILATION AND CURETTAGE [None]
  - UTERINE POLYP [None]
